FAERS Safety Report 11433551 (Version 1)
Quarter: 2015Q3

REPORT INFORMATION
  Report Type: Spontaneous
  Country: CH (occurrence: CH)
  Receive Date: 20150831
  Receipt Date: 20150831
  Transmission Date: 20151125
  Serious: Yes (Life-Threatening, Other)
  Sender: FDA-Public Use
  Company Number: CH-009507513-1508CHE012068

PATIENT
  Age: 49 Year
  Sex: Female
  Weight: 110 kg

DRUGS (18)
  1. CANDESARTAN CILEXETIL (+) HYDROCHLOROTHIAZIDE [Concomitant]
     Active Substance: CANDESARTAN CILEXETIL\HYDROCHLOROTHIAZIDE
     Dosage: ONCE DAILY
     Route: 048
  2. NOVALGIN (DIPYRONE) [Suspect]
     Active Substance: DIPYRONE
     Indication: ANALGESIC THERAPY
     Dosage: 1 G, ONCE
     Route: 042
     Dates: start: 20150428, end: 20150428
  3. TORSEMIDE. [Concomitant]
     Active Substance: TORSEMIDE
     Dosage: 10 MG, TID
     Route: 048
  4. PANTOPRAZOLE [Concomitant]
     Active Substance: PANTOPRAZOLE SODIUM
     Dosage: 40 MG, BID
     Route: 048
  5. ESMERON [Suspect]
     Active Substance: ROCURONIUM BROMIDE
     Indication: MUSCLE RELAXANT THERAPY
     Dosage: FREQUENCY 3 DOSAGES: 35MG AT 10:30AM, 20MG AT 0:55PM AND 50MG AT 01:00AM
     Route: 042
     Dates: start: 20150428, end: 20150428
  6. CALCIMAGON D3 [Concomitant]
     Active Substance: CALCIUM\CHOLECALCIFEROL
     Dosage: ONCE DAILY
     Route: 048
  7. ATORVASTATIN [Concomitant]
     Active Substance: ATORVASTATIN
     Dosage: 20 MG, ONCE DAILY
     Route: 048
  8. AUGMENTIN [Suspect]
     Active Substance: AMOXICILLIN\CLAVULANATE POTASSIUM
     Indication: ANTIBIOTIC PROPHYLAXIS
     Dosage: 2000/200  MG, QD
     Route: 042
     Dates: start: 20150428, end: 20150428
  9. ALVESCO [Concomitant]
     Active Substance: CICLESONIDE
     Dosage: 160 MICROGRAM, FOUR TIMES DAILY
     Route: 055
  10. METOLAZONE. [Concomitant]
     Active Substance: METOLAZONE
     Dosage: EVERY OTHER DAY
     Route: 048
  11. SINGULAIR [Concomitant]
     Active Substance: MONTELUKAST SODIUM
     Dosage: 10 MG, ONCE DAILY
     Route: 048
  12. VANNAIR [Concomitant]
     Active Substance: BUDESONIDE\FORMOTEROL FUMARATE DIHYDRATE
     Dosage: FOUR TIMES DAILY
     Route: 055
  13. AVAMYS [Concomitant]
     Active Substance: FLUTICASONE FUROATE
     Dosage: FOUR TIMES DAILY
     Route: 045
  14. MAGNESIUM DIASPORAL [Concomitant]
     Dosage: ONCE DAILY
     Route: 048
  15. POTASSIUM CHLORIDE. [Concomitant]
     Active Substance: POTASSIUM CHLORIDE
     Dosage: 600 MG, FOUR TIMES DAILY
     Route: 048
  16. SPIRICORT [Concomitant]
     Active Substance: PREDNISOLONE
     Dosage: 20 MG, ONCE DAILY
     Route: 048
  17. LAXOBERON [Concomitant]
     Active Substance: SODIUM PICOSULFATE
     Dosage: UNK
     Route: 048
  18. ALDACTONE [Concomitant]
     Active Substance: SPIRONOLACTONE
     Dosage: 25 MG, TID
     Route: 048

REACTIONS (7)
  - Urticaria [Recovered/Resolved]
  - Type I hypersensitivity [Recovered/Resolved]
  - Erythema [Recovered/Resolved]
  - Anaphylactic reaction [Recovered/Resolved]
  - Skin test positive [Recovered/Resolved]
  - Drug hypersensitivity [Recovered/Resolved]
  - Hypotonia [Recovered/Resolved]

NARRATIVE: CASE EVENT DATE: 20150428
